FAERS Safety Report 26006145 (Version 1)
Quarter: 2025Q4

REPORT INFORMATION
  Report Type: Report from Study
  Country: US (occurrence: US)
  Receive Date: 20251106
  Receipt Date: 20251106
  Transmission Date: 20260117
  Serious: Yes (Hospitalization, Other)
  Sender: ROCHE
  Company Number: US-ROCHE-10000424357

PATIENT
  Age: 50 Year
  Sex: Female

DRUGS (12)
  1. MYCOPHENOLATE MOFETIL [Suspect]
     Active Substance: MYCOPHENOLATE MOFETIL
     Indication: Systemic lupus erythematosus
     Route: 048
  2. MYCOPHENOLATE MOFETIL [Suspect]
     Active Substance: MYCOPHENOLATE MOFETIL
     Indication: Rheumatoid arthritis
  3. MYCOPHENOLATE MOFETIL [Suspect]
     Active Substance: MYCOPHENOLATE MOFETIL
     Indication: Raynaud^s phenomenon
  4. MYCOPHENOLATE MOFETIL [Suspect]
     Active Substance: MYCOPHENOLATE MOFETIL
     Indication: Leukopenia
  5. NIFEDIPINE [Concomitant]
     Active Substance: NIFEDIPINE
  6. PREDNISONE [Concomitant]
     Active Substance: PREDNISONE
     Route: 048
     Dates: start: 20240812
  7. HYDROXYCHLOROQUINE [Concomitant]
     Active Substance: HYDROXYCHLOROQUINE
     Dates: start: 20240523, end: 20250710
  8. METHOTREXATE [Concomitant]
     Active Substance: METHOTREXATE
  9. PHENTERMINE [Concomitant]
     Active Substance: PHENTERMINE
     Route: 048
  10. Lubriprostone [Concomitant]
     Route: 048
  11. LEVALBUTEROL [Concomitant]
     Active Substance: LEVALBUTEROL
     Route: 055
  12. IBUPROFEN [Concomitant]
     Active Substance: IBUPROFEN
     Route: 048

REACTIONS (25)
  - Diverticulitis [Recovered/Resolved]
  - Pain [Unknown]
  - Musculoskeletal discomfort [Unknown]
  - Systemic lupus erythematosus [Unknown]
  - Pulmonary mass [Unknown]
  - Thyroid mass [Unknown]
  - Dermatitis [Unknown]
  - Migraine [Unknown]
  - Musculoskeletal disorder [Unknown]
  - Photosensitivity reaction [Unknown]
  - Blood pressure increased [Unknown]
  - Obesity [Unknown]
  - Musculoskeletal discomfort [Unknown]
  - Lymphadenopathy [Unknown]
  - Palpitations [Unknown]
  - Rhinitis allergic [Unknown]
  - Asthma [Unknown]
  - Gastrooesophageal reflux disease [Unknown]
  - Goitre [Unknown]
  - Hiatus hernia [Unknown]
  - Sinusitis [Unknown]
  - Swelling [Unknown]
  - Ill-defined disorder [Unknown]
  - Product prescribing issue [Unknown]
  - Off label use [Unknown]
